FAERS Safety Report 9181625 (Version 1)
Quarter: 2013Q1

REPORT INFORMATION
  Report Type: Spontaneous
  Country: US (occurrence: US)
  Receive Date: 20130322
  Receipt Date: 20130322
  Transmission Date: 20140127
  Serious: Yes (Hospitalization, Other)
  Sender: FDA-Public Use
  Company Number: US-JNJFOC-20130307859

PATIENT
  Sex: Male

DRUGS (6)
  1. TOPIRAMATE [Suspect]
     Indication: MYOCLONIC EPILEPSY
     Route: 048
     Dates: start: 201207
  2. CLOBAZAM [Suspect]
     Indication: ATONIC SEIZURES
     Dosage: START DATE APPROXIMATELY 2 WEEKS PRIOR TO ADMISSION
     Route: 065
     Dates: end: 20130128
  3. CLOBAZAM [Suspect]
     Indication: MYOCLONIC EPILEPSY
     Dosage: START DATE APPROXIMATELY 2 WEEKS PRIOR TO ADMISSION
     Route: 065
     Dates: end: 20130128
  4. VALPROIC ACID [Suspect]
     Indication: ATONIC SEIZURES
     Dosage: STARTED SOME TIME PRIOR TO JAN-2010
     Route: 065
  5. AMOXICILLIN [Suspect]
     Indication: PHARYNGITIS STREPTOCOCCAL
     Route: 065
  6. TRANXENE [Concomitant]
     Indication: PRODUCT USED FOR UNKNOWN INDICATION
     Route: 065
     Dates: start: 201212

REACTIONS (4)
  - Stevens-Johnson syndrome [Unknown]
  - Lobar pneumonia [Unknown]
  - Food intolerance [Unknown]
  - Diarrhoea [Unknown]
